FAERS Safety Report 8169260-8 (Version None)
Quarter: 2012Q1

REPORT INFORMATION
  Report Type: 
  Country: None (occurrence: None)
  Receive Date: 20120228
  Receipt Date: 20120217
  Transmission Date: 20120608
  Serious: Yes (Other)
  Sender: FDA-Public Use
  Company Number: US-ASTRAZENECA-2012SE11359

PATIENT
  Age: 79 Year
  Sex: Male

DRUGS (1)
  1. BRILINTA [Suspect]
     Indication: MYOCARDIAL INFARCTION
     Route: 048

REACTIONS (1)
  - CULTURE STOOL POSITIVE [None]
